FAERS Safety Report 25282950 (Version 2)
Quarter: 2025Q2

REPORT INFORMATION
  Report Type: Spontaneous
  Country: US (occurrence: US)
  Receive Date: 20250508
  Receipt Date: 20250523
  Transmission Date: 20250717
  Serious: Yes (Hospitalization)
  Sender: SAREPTA THERAPEUTICS
  Company Number: US-SAREPTA THERAPEUTICS INC.-SRP2025-005925

PATIENT
  Age: 12 Year
  Sex: Male
  Weight: 42.6 kg

DRUGS (7)
  1. ELEVIDYS [Suspect]
     Active Substance: DELANDISTROGENE MOXEPARVOVEC-ROKL
     Indication: Duchenne muscular dystrophy
     Route: 042
     Dates: start: 20250418, end: 20250418
  2. CETIRIZINE HYDROCHLORIDE [Concomitant]
     Active Substance: CETIRIZINE HYDROCHLORIDE
     Indication: Seasonal allergy
     Dosage: 10 MILLIGRAM, QD
     Route: 048
     Dates: start: 20241031
  3. ENTRESTO [Concomitant]
     Active Substance: SACUBITRIL\VALSARTAN
     Indication: Cardiomyopathy
     Dosage: 24 TO 26MG, QD
     Route: 048
     Dates: start: 20241031
  4. PEPCID [Concomitant]
     Active Substance: FAMOTIDINE
     Indication: Duchenne muscular dystrophy
     Dosage: 20 MILLIGRAM, BID
     Route: 048
     Dates: start: 20250412
  5. PREDNISONE [Concomitant]
     Active Substance: PREDNISONE
     Indication: Duchenne muscular dystrophy
     Dosage: 60 MILLIGRAM, QD
     Route: 048
     Dates: start: 20250412
  6. ZOFRAN [Concomitant]
     Active Substance: ONDANSETRON HYDROCHLORIDE
     Indication: Premedication
     Route: 048
     Dates: start: 20250418, end: 20250418
  7. DIPHENHYDRAMINE [Concomitant]
     Active Substance: DIPHENHYDRAMINE
     Indication: Premedication
     Route: 048
     Dates: start: 20250418, end: 20250418

REACTIONS (9)
  - Dehydration [Unknown]
  - Pyrexia [Recovered/Resolved]
  - Nausea [Recovered/Resolved]
  - Vomiting [Recovered/Resolved]
  - Hypotension [Unknown]
  - Troponin T increased [Recovering/Resolving]
  - Decreased appetite [Recovering/Resolving]
  - Alanine aminotransferase increased [Recovering/Resolving]
  - Aspartate aminotransferase increased [Recovering/Resolving]

NARRATIVE: CASE EVENT DATE: 20250419
